FAERS Safety Report 10207355 (Version 1)
Quarter: 2014Q2

REPORT INFORMATION
  Report Type: Spontaneous
  Country: US (occurrence: US)
  Receive Date: 20140530
  Receipt Date: 20140530
  Transmission Date: 20141212
  Serious: No
  Sender: FDA-Public Use
  Company Number: US-GLAXOSMITHKLINE-A1037210A

PATIENT
  Sex: Female

DRUGS (1)
  1. VENTOLIN [Suspect]
     Indication: ASTHMA
     Dosage: 1PUFF AS REQUIRED
     Route: 045
     Dates: start: 2008

REACTIONS (3)
  - Feeling jittery [Recovered/Resolved]
  - Blood pressure increased [Recovered/Resolved]
  - Dizziness [Recovered/Resolved]
